FAERS Safety Report 10380373 (Version 6)
Quarter: 2015Q3

REPORT INFORMATION
  Report Type: Report from Study
  Country: BR (occurrence: BR)
  Receive Date: 20140813
  Receipt Date: 20150828
  Transmission Date: 20151125
  Serious: Yes (Hospitalization, Other)
  Sender: FDA-Public Use
  Company Number: BR-ROCHE-1194456

PATIENT
  Age: 71 Year
  Sex: Female
  Weight: 42 kg

DRUGS (14)
  1. CALCITRAN D3 [Concomitant]
  2. METFORMIN [Concomitant]
     Active Substance: METFORMIN HYDROCHLORIDE
     Indication: DIABETES MELLITUS
     Route: 065
  3. PREDNISONE. [Concomitant]
     Active Substance: PREDNISONE
     Route: 065
  4. METHOTREXATE [Concomitant]
     Active Substance: METHOTREXATE
  5. OMEPRAZOLE. [Concomitant]
     Active Substance: OMEPRAZOLE
     Route: 065
  6. ATENOLOL. [Concomitant]
     Active Substance: ATENOLOL
     Indication: HYPERTENSION
  7. PANTOPRAZOLE [Concomitant]
     Active Substance: PANTOPRAZOLE SODIUM
  8. STILNOX [Concomitant]
     Active Substance: ZOLPIDEM TARTRATE
     Route: 065
  9. MABTHERA [Suspect]
     Active Substance: RITUXIMAB
     Indication: RHEUMATOID ARTHRITIS
     Dosage: LATEST DOSE ON 20/APR/2012.
     Route: 042
     Dates: start: 20100701
  10. AMLODIPINE [Concomitant]
     Active Substance: AMLODIPINE BESYLATE
     Indication: HYPERTENSION
     Route: 065
  11. ABATACEPT [Concomitant]
     Active Substance: ABATACEPT
  12. FUROSEMIDE. [Concomitant]
     Active Substance: FUROSEMIDE
     Indication: HYPERTENSION
     Route: 065
  13. PREDNISONE. [Concomitant]
     Active Substance: PREDNISONE
     Route: 065
  14. SULFADIAZINE. [Concomitant]
     Active Substance: SULFADIAZINE

REACTIONS (31)
  - Sjogren^s syndrome [Not Recovered/Not Resolved]
  - Dysentery [Recovered/Resolved]
  - Lung infection [Not Recovered/Not Resolved]
  - Rheumatoid arthritis [Unknown]
  - Diabetes mellitus [Not Recovered/Not Resolved]
  - Fatigue [Not Recovered/Not Resolved]
  - Fibrosis [Not Recovered/Not Resolved]
  - Peripheral swelling [Not Recovered/Not Resolved]
  - Depression [Not Recovered/Not Resolved]
  - Pulmonary oedema [Not Recovered/Not Resolved]
  - Anaemia [Not Recovered/Not Resolved]
  - Paraesthesia [Not Recovered/Not Resolved]
  - Back pain [Not Recovered/Not Resolved]
  - Osteitis [Unknown]
  - Arthralgia [Unknown]
  - Anaemia [Unknown]
  - Hypertension [Not Recovered/Not Resolved]
  - Pneumonia [Recovered/Resolved]
  - Vomiting [Recovered/Resolved]
  - Lung infection [Recovered/Resolved]
  - Pulmonary haemorrhage [Unknown]
  - Cardiovascular disorder [Not Recovered/Not Resolved]
  - Influenza [Not Recovered/Not Resolved]
  - Oropharyngeal pain [Not Recovered/Not Resolved]
  - Urinary tract infection [Not Recovered/Not Resolved]
  - Vaginal discharge [Not Recovered/Not Resolved]
  - Osteoporosis [Not Recovered/Not Resolved]
  - Pyrexia [Unknown]
  - Unevaluable event [Unknown]
  - Pain in extremity [Not Recovered/Not Resolved]
  - Burning sensation [Not Recovered/Not Resolved]

NARRATIVE: CASE EVENT DATE: 201210
